FAERS Safety Report 5503276-2 (Version None)
Quarter: 2007Q4

REPORT INFORMATION
  Report Type: 
  Country: None (occurrence: None)
  Receive Date: 20071031
  Receipt Date: 20071018
  Transmission Date: 20080405
  Serious: Yes (Other)
  Sender: FDA-Public Use
  Company Number: DE-GENENTECH-250449

PATIENT
  Sex: Male
  Weight: 43.81 kg

DRUGS (2)
  1. AVASTIN [Suspect]
     Indication: METASTASES TO LUNG
     Dosage: 5 MG/KG, Q3W
     Route: 042
     Dates: start: 20070723
  2. GEMZAR [Concomitant]
     Indication: DRUG USE FOR UNKNOWN INDICATION

REACTIONS (10)
  - GAIT DISTURBANCE [None]
  - HEADACHE [None]
  - HEART RATE INCREASED [None]
  - HYPERHIDROSIS [None]
  - MOBILITY DECREASED [None]
  - MUSCLE SPASMS [None]
  - NERVOUS SYSTEM DISORDER [None]
  - PAIN [None]
  - PAIN IN EXTREMITY [None]
  - VISUAL DISTURBANCE [None]
